FAERS Safety Report 20663776 (Version 5)
Quarter: 2022Q3

REPORT INFORMATION
  Report Type: Spontaneous
  Country: JP (occurrence: JP)
  Receive Date: 20220401
  Receipt Date: 20220908
  Transmission Date: 20221026
  Serious: Yes (Death, Hospitalization, Other)
  Sender: FDA-Public Use
  Company Number: JP-MSD-M2022-10089

PATIENT
  Age: 62 Year
  Sex: Female
  Weight: 53 kg

DRUGS (13)
  1. KEYTRUDA [Suspect]
     Active Substance: PEMBROLIZUMAB
     Indication: Uterine cancer
     Dosage: 200 MILLIGRAM, Q3W
     Route: 041
     Dates: start: 20220304, end: 20220304
  2. LENVATINIB MESYLATE [Suspect]
     Active Substance: LENVATINIB MESYLATE
     Indication: Uterine cancer
     Dosage: 20 MILLIGRAM, QD
     Route: 048
     Dates: start: 20220304, end: 20220304
  3. LENVATINIB MESYLATE [Suspect]
     Active Substance: LENVATINIB MESYLATE
     Dosage: 14 MILLIGRAM, QD
     Route: 048
     Dates: start: 20220307, end: 20220320
  4. DOXORUBICIN HYDROCHLORIDE [Suspect]
     Active Substance: DOXORUBICIN HYDROCHLORIDE
     Indication: Thymoma
     Dosage: UNK
     Route: 065
  5. DOXORUBICIN HYDROCHLORIDE [Suspect]
     Active Substance: DOXORUBICIN HYDROCHLORIDE
     Indication: Uterine cancer
  6. ZICTHORU [Concomitant]
     Indication: Analgesic therapy
     Dosage: 225 MILLIGRAM
     Dates: start: 20211227, end: 20220322
  7. SYMPROIC [Concomitant]
     Active Substance: NALDEMEDINE
     Indication: Constipation
     Dosage: 0.2 MILLIGRAM
     Route: 048
     Dates: start: 20211227, end: 20220326
  8. TAPENTADOL HYDROCHLORIDE [Concomitant]
     Active Substance: TAPENTADOL HYDROCHLORIDE
     Indication: Analgesic therapy
     Dosage: 200 MILLIGRAM, BID
     Route: 048
     Dates: start: 20220119, end: 20220326
  9. MIROGABALIN BESYLATE [Concomitant]
     Active Substance: MIROGABALIN BESYLATE
     Indication: Hypoaesthesia
     Dosage: 2.5 MILLIGRAM, BID
     Route: 048
     Dates: start: 20211227, end: 20220322
  10. CALONAL [Concomitant]
     Active Substance: ACETAMINOPHEN
     Indication: Analgesic therapy
     Dosage: 1000 MILLIGRAM, TID
     Route: 048
     Dates: start: 20211227, end: 20220322
  11. OXYCODONE HYDROCHLORIDE [Concomitant]
     Active Substance: OXYCODONE HYDROCHLORIDE
     Dosage: UNK, PRN
     Route: 048
     Dates: start: 20211227, end: 20220326
  12. METHADONE HYDROCHLORIDE [Concomitant]
     Active Substance: METHADONE HYDROCHLORIDE
     Dosage: 10 MILLIGRAM, BID
     Route: 048
     Dates: start: 20220228, end: 20220326
  13. LINZESS [Concomitant]
     Active Substance: LINACLOTIDE
     Dosage: UNK, PRN
     Route: 048
     Dates: start: 20211227, end: 20220322

REACTIONS (4)
  - Myocarditis [Fatal]
  - Hepatic function abnormal [Not Recovered/Not Resolved]
  - Nausea [Recovered/Resolved]
  - Hypertension [Recovered/Resolved]

NARRATIVE: CASE EVENT DATE: 20220304
